FAERS Safety Report 21903679 (Version 1)
Quarter: 2023Q1

REPORT INFORMATION
  Report Type: Spontaneous
  Country: US (occurrence: US)
  Receive Date: 20230124
  Receipt Date: 20230124
  Transmission Date: 20230418
  Serious: No
  Sender: FDA-Public Use
  Company Number: US-PFIZER INC-PV202300012744

PATIENT
  Age: 32 Year
  Sex: Male
  Weight: 79.83 kg

DRUGS (1)
  1. XELJANZ XR [Suspect]
     Active Substance: TOFACITINIB CITRATE
     Indication: Spondylitis
     Dosage: 11 MG (1 TABLET), 1X/DAY

REACTIONS (2)
  - Gastric disorder [Unknown]
  - Product residue present [Unknown]

NARRATIVE: CASE EVENT DATE: 20230101
